FAERS Safety Report 4821935-1 (Version None)
Quarter: 2005Q4

REPORT INFORMATION
  Report Type: 
  Country: None (occurrence: None)
  Receive Date: 20051103
  Receipt Date: 20051026
  Transmission Date: 20060501
  Serious: Yes (Other)
  Sender: FDA-Public Use
  Company Number: SUSI-2005-00690

PATIENT
  Age: 68 Year
  Sex: Male

DRUGS (7)
  1. AMATINE (MIDODRINE)TABLET [Suspect]
     Indication: ORTHOSTATIC HYPOTENSION
     Dosage: 5 MG, HALF TABLET 2X/DAY, ORAL
     Route: 048
     Dates: start: 20050601
  2. SYNTHROID [Concomitant]
  3. LITHIUM (LITHIUM) [Concomitant]
  4. CELEXA [Concomitant]
  5. WELLBUTRIN SR [Concomitant]
  6. TAMSULOSIN HYDROCHLORIDE (TAMSULOSIN HYDROCHLORIDE) [Concomitant]
  7. CLONAZEPAM [Concomitant]

REACTIONS (1)
  - PSYCHOTIC DISORDER [None]
